FAERS Safety Report 4284682-3 (Version None)
Quarter: 2004Q1

REPORT INFORMATION
  Report Type: 
  Country: None (occurrence: None)
  Receive Date: 20040130
  Receipt Date: 20040121
  Transmission Date: 20041129
  Serious: Yes (Hospitalization, Other)
  Sender: FDA-Public Use
  Company Number: DE-JNJFOC-20040101596

PATIENT
  Age: 85 Year
  Sex: Male
  Weight: 71 kg

DRUGS (9)
  1. RISPERDAL [Suspect]
     Indication: DEMENTIA
     Dosage: SEE IMAGE
     Route: 048
     Dates: end: 20031226
  2. RISPERDAL [Suspect]
     Indication: DEMENTIA
     Dosage: SEE IMAGE
     Route: 048
     Dates: start: 20031227, end: 20040108
  3. RISPERDAL [Suspect]
     Indication: DEMENTIA
     Dosage: SEE IMAGE
     Route: 048
     Dates: start: 20040109
  4. VIOXX [Concomitant]
  5. ENAHEXAL (ENALAPRIL MALEATE) TABLETS [Concomitant]
  6. ZOLPIDEM TARTRATE [Concomitant]
  7. PARACETAMOL (PARACETAMOL) TABLETS [Concomitant]
  8. NEYGERON (NEYGERONT- CAPSULE) CAPSULES [Concomitant]
  9. ESLDRIX (HYDROCHLOROTHIAZIDE) TABLETS [Concomitant]

REACTIONS (7)
  - ATRIAL TACHYCARDIA [None]
  - ATRIOVENTRICULAR BLOCK [None]
  - AV DISSOCIATION [None]
  - BUNDLE BRANCH BLOCK LEFT [None]
  - CONDITION AGGRAVATED [None]
  - HYPERTENSION [None]
  - PSYCHOTIC DISORDER [None]
